FAERS Safety Report 5255110-6 (Version None)
Quarter: 2007Q1

REPORT INFORMATION
  Report Type: 
  Country: None (occurrence: None)
  Receive Date: 20070305
  Receipt Date: 20070221
  Transmission Date: 20070707
  Serious: Yes (Hospitalization)
  Sender: FDA-Public Use
  Company Number: PHBS2007JP03550

PATIENT
  Age: 56 Year
  Sex: Male

DRUGS (1)
  1. CYCLOSPORINE [Suspect]
     Route: 065

REACTIONS (1)
  - ANGINA PECTORIS [None]
